FAERS Safety Report 17346072 (Version 1)
Quarter: 2020Q1

REPORT INFORMATION
  Report Type: Spontaneous
  Country: US (occurrence: US)
  Receive Date: 20200114
  Receipt Date: 20200114
  Transmission Date: 20200409
  Serious: No
  Sender: FDA-Public Use
  Company Number: None

PATIENT
  Age: 62 Year
  Sex: Male

DRUGS (2)
  1. ZYTIGA [Suspect]
     Active Substance: ABIRATERONE ACETATE
     Route: 048
     Dates: start: 201901
  2. XGEVA [Concomitant]
     Active Substance: DENOSUMAB

REACTIONS (2)
  - Blood testosterone decreased [None]
  - Erectile dysfunction [None]

NARRATIVE: CASE EVENT DATE: 20200114
